FAERS Safety Report 5067583-2 (Version None)
Quarter: 2006Q3

REPORT INFORMATION
  Report Type: 
  Country: None (occurrence: None)
  Receive Date: 20060731
  Receipt Date: 20060711
  Transmission Date: 20061208
  Serious: Yes (Death, Life-Threatening, Hospitalization, Other)
  Sender: FDA-Public Use
  Company Number: US200607002125

PATIENT
  Age: 54 Year
  Sex: Female

DRUGS (2)
  1. XIGRIS [Suspect]
     Indication: SEPSIS
     Dosage: INTRAVENOUS
     Route: 042
  2. NOREPINEPHRINE BITARTRATE [Concomitant]

REACTIONS (1)
  - RESPIRATORY DEPRESSION [None]
